FAERS Safety Report 8377120-2 (Version None)
Quarter: 2012Q2

REPORT INFORMATION
  Report Type: 
  Country: None (occurrence: None)
  Receive Date: 20120522
  Receipt Date: 20120507
  Transmission Date: 20120825
  Serious: Yes (Other)
  Sender: FDA-Public Use
  Company Number: PL-ROCHE-1020620

PATIENT
  Sex: Female
  Weight: 50 kg

DRUGS (6)
  1. METYPRED (METHYLPREDNISOLONE) [Concomitant]
     Indication: RHEUMATOID ARTHRITIS
     Route: 048
  2. ALFADIOL [Concomitant]
     Indication: OSTEOPOROSIS
     Route: 048
  3. BISOPROLOL FUMARATE [Concomitant]
     Indication: HYPERTENSION
     Route: 048
  4. ACTEMRA [Suspect]
     Indication: RHEUMATOID ARTHRITIS
     Route: 042
  5. AMLODIPINE BESYLATE [Concomitant]
     Indication: HYPERTENSION
     Route: 048
  6. LANSOPRAZOLE [Concomitant]
     Indication: INFLAMMATION
     Dosage: INDICATION WAS INFLAMMATION OF GASTRIC MUCOSA
     Route: 048

REACTIONS (3)
  - CELLULITIS [None]
  - SOFT TISSUE INFECTION [None]
  - INFLAMMATION [None]
